FAERS Safety Report 10643866 (Version 1)
Quarter: 2014Q4

REPORT INFORMATION
  Report Type: Spontaneous
  Country: PL (occurrence: PL)
  Receive Date: 20141210
  Receipt Date: 20141210
  Transmission Date: 20150529
  Serious: Yes (Other)
  Sender: FDA-Public Use
  Company Number: PL-ACTAVIS-2014-26144

PATIENT
  Sex: Female

DRUGS (5)
  1. DEXAVEN [Concomitant]
     Active Substance: DEXAMETHASONE
     Indication: OVARIAN CANCER
     Dosage: 8 MG, BID
     Route: 042
     Dates: start: 20140618, end: 20140618
  2. ONDANSETRON [Concomitant]
     Active Substance: ONDANSETRON
     Indication: OVARIAN CANCER
     Dosage: 8 MG, BID
     Route: 042
     Dates: start: 20140618, end: 20140618
  3. PACLITAXEL (UNKNOWN) [Suspect]
     Active Substance: PACLITAXEL
     Indication: OVARIAN CANCER
     Dosage: 175 MG/M2, UNK
     Route: 042
     Dates: start: 20140618, end: 20140618
  4. CARBOPLATIN. [Concomitant]
     Active Substance: CARBOPLATIN
     Indication: OVARIAN CANCER
     Dosage: 350 MG/M2, UNK
     Route: 042
     Dates: start: 20140618, end: 20140618
  5. CLEMASTIN [Concomitant]
     Active Substance: CLEMASTINE
     Indication: OVARIAN CANCER
     Dosage: 2 MG, UNK
     Route: 042
     Dates: start: 20140618, end: 20140618

REACTIONS (2)
  - Back pain [Recovered/Resolved]
  - Erythema [Recovered/Resolved]

NARRATIVE: CASE EVENT DATE: 20140618
